FAERS Safety Report 24248079 (Version 2)
Quarter: 2025Q1

REPORT INFORMATION
  Report Type: Spontaneous
  Country: AU (occurrence: AU)
  Receive Date: 20240826
  Receipt Date: 20250211
  Transmission Date: 20250409
  Serious: Yes (Hospitalization)
  Sender: MYLAN
  Company Number: AU-MYLANLABS-2024M1078232

PATIENT
  Sex: Male

DRUGS (3)
  1. CLOZARIL [Suspect]
     Active Substance: CLOZAPINE
     Indication: Schizophrenia
     Route: 048
     Dates: start: 20000721
  2. NALTREXONE [Concomitant]
     Active Substance: NALTREXONE
     Dosage: 1 DOSAGE FORM, PM (1 TABLET AT NIGHT)
     Route: 048
  3. MIRTAZAPINE [Concomitant]
     Active Substance: MIRTAZAPINE
     Dosage: 1 DOSAGE FORM, PM (1 TABLET AT NIGHT)
     Route: 048

REACTIONS (1)
  - Hospitalisation [Unknown]
